FAERS Safety Report 6136917-X (Version None)
Quarter: 2009Q1

REPORT INFORMATION
  Report Type: 
  Country: None (occurrence: None)
  Receive Date: 20090330
  Receipt Date: 20090318
  Transmission Date: 20090719
  Serious: Yes (Other)
  Sender: FDA-Public Use
  Company Number: JP-MERCK-0903USA04333B1

PATIENT
  Weight: 1 kg

DRUGS (4)
  1. DECADRON [Suspect]
     Indication: FOETAL CARDIAC DISORDER
     Route: 064
  2. DECADRON [Suspect]
     Indication: MYOCARDITIS
     Route: 064
  3. RITODRINE HYDROCHLORIDE [Concomitant]
     Indication: FOETAL CARDIAC DISORDER
     Route: 064
  4. RITODRINE HYDROCHLORIDE [Concomitant]
     Indication: MYOCARDITIS
     Route: 064

REACTIONS (7)
  - ATRIAL SEPTAL DEFECT [None]
  - CYANOSIS [None]
  - DRUG EXPOSURE DURING PREGNANCY [None]
  - PATENT DUCTUS ARTERIOSUS [None]
  - PERICARDIAL EFFUSION [None]
  - RIGHT VENTRICULAR DYSFUNCTION [None]
  - SMALL FOR DATES BABY [None]
